FAERS Safety Report 16994760 (Version 1)
Quarter: 2019Q4

REPORT INFORMATION
  Report Type: Spontaneous
  Country: IT (occurrence: IT)
  Receive Date: 20191105
  Receipt Date: 20191105
  Transmission Date: 20200122
  Serious: Yes (Other)
  Sender: FDA-Public Use
  Company Number: IT-PFIZER INC-2019470946

PATIENT
  Age: 62 Year
  Sex: Female

DRUGS (4)
  1. SEROQUEL [Concomitant]
     Active Substance: QUETIAPINE FUMARATE
     Dosage: UNK
  2. SERENASE [Concomitant]
     Dosage: UNK
  3. EFFEXOR XR [Suspect]
     Active Substance: VENLAFAXINE HYDROCHLORIDE
     Indication: DEPRESSION
     Dosage: UNK
     Dates: start: 20190729
  4. EN [Concomitant]
     Active Substance: DELORAZEPAM
     Dosage: UNK

REACTIONS (4)
  - Mental impairment [Unknown]
  - Confusional state [Unknown]
  - Derailment [Unknown]
  - Speech disorder [Unknown]

NARRATIVE: CASE EVENT DATE: 20191007
